FAERS Safety Report 21838766 (Version 1)
Quarter: 2023Q1

REPORT INFORMATION
  Report Type: Spontaneous
  Country: US (occurrence: None)
  Receive Date: 20230107
  Receipt Date: 20230107
  Transmission Date: 20230418
  Serious: Yes (Hospitalization, Other)
  Sender: FDA-Public Use
  Company Number: None

PATIENT
  Age: 48 Year
  Sex: Male
  Weight: 86 kg

DRUGS (1)
  1. CEFEPIME HYDROCHLORIDE [Suspect]
     Active Substance: CEFEPIME HYDROCHLORIDE
     Indication: Osteomyelitis
     Dosage: OTHER STRENGTH : 1GM/VIL;?OTHER QUANTITY : 2 OR 3 GM;?
     Dates: start: 2022, end: 20221112

REACTIONS (4)
  - Confusional state [None]
  - Sedation [None]
  - Mental status changes [None]
  - Haemodialysis [None]

NARRATIVE: CASE EVENT DATE: 20220112
